FAERS Safety Report 8471279-4 (Version None)
Quarter: 2012Q2

REPORT INFORMATION
  Report Type: 
  Country: None (occurrence: None)
  Receive Date: 20120627
  Receipt Date: 20120619
  Transmission Date: 20120825
  Serious: Yes (Hospitalization)
  Sender: FDA-Public Use
  Company Number: US-BAYER-2012-012253

PATIENT
  Age: 48 Year
  Sex: Female

DRUGS (9)
  1. AMITRIPTYLINE HCL [Concomitant]
     Dosage: 10 MG, 2 TABLETS HS
     Route: 048
     Dates: start: 20091002
  2. LEXAPRO [Concomitant]
     Dosage: 20 MG, 1 TABLET EVERY DAY
     Route: 048
     Dates: start: 20091031
  3. DROSPIRENONE AND ETHINYL ESTRADIOL [Suspect]
     Dosage: UNK
     Dates: start: 20050901, end: 20091201
  4. ABILIFY [Concomitant]
     Dosage: 2 MG, 2 TABLETS DAILY
     Route: 048
     Dates: start: 20091011
  5. ULTRAM ER [Concomitant]
     Dosage: 100 MG, 1 TABLETS DAILY
     Route: 048
     Dates: start: 20091009
  6. HYDROCODONE BITARTRATE AND ACETAMINOPHEN [Concomitant]
     Dosage: 5MG/500MG 1-2 TABLETS EVERY 4 HOURS AS NEEDED
     Route: 048
     Dates: start: 20091014
  7. SOMA [Concomitant]
     Dosage: 250 MG, QID
     Route: 048
     Dates: start: 20091022
  8. YASMIN [Suspect]
     Indication: PRODUCT USED FOR UNKNOWN INDICATION
     Dosage: UNK
     Dates: start: 20050901, end: 20091201
  9. VESICARE [Concomitant]
     Dosage: 5 MG, 1 TAB DAILY
     Dates: start: 20091002

REACTIONS (4)
  - PAIN [None]
  - PULMONARY EMBOLISM [None]
  - DEEP VEIN THROMBOSIS [None]
  - INJURY [None]
